FAERS Safety Report 10080435 (Version 1)
Quarter: 2014Q2

REPORT INFORMATION
  Report Type: Spontaneous
  Country: US (occurrence: US)
  Receive Date: 20140416
  Receipt Date: 20140416
  Transmission Date: 20141212
  Serious: Yes (Hospitalization)
  Sender: FDA-Public Use
  Company Number: US-AMGEN-USASP2014026841

PATIENT
  Age: 60 Year
  Sex: Male

DRUGS (1)
  1. ENBREL [Suspect]
     Indication: PSORIASIS
     Dosage: 50 MG, 2 TIMES/WK
     Route: 065
     Dates: start: 20130930, end: 20140227

REACTIONS (3)
  - Pancreatitis acute [Recovered/Resolved]
  - Nail bed disorder [Not Recovered/Not Resolved]
  - Psoriasis [Not Recovered/Not Resolved]
